FAERS Safety Report 17147910 (Version 4)
Quarter: 2020Q2

REPORT INFORMATION
  Report Type: Report from Study
  Country: US (occurrence: US)
  Receive Date: 20191212
  Receipt Date: 20200508
  Transmission Date: 20200713
  Serious: No
  Sender: FDA-Public Use
  Company Number: NVSC2019US067707

PATIENT
  Sex: Female

DRUGS (2)
  1. ENTRESTO [Suspect]
     Active Substance: SACUBITRIL\VALSARTAN
     Indication: CARDIAC FAILURE
     Dosage: 1 DF, BID (24 MG OF SACUBITRIL/ 26 MG OF VALSARTAN), BID
     Route: 048
  2. ENTRESTO [Suspect]
     Active Substance: SACUBITRIL\VALSARTAN
     Indication: CARDIAC FAILURE CHRONIC
     Dosage: 100 MG, BID (49/51MG)
     Route: 048

REACTIONS (5)
  - Hypotension [Unknown]
  - Ejection fraction decreased [Unknown]
  - Cough [Unknown]
  - Nasal congestion [Unknown]
  - Blood pressure increased [Unknown]
